FAERS Safety Report 9722918 (Version 1)
Quarter: 2013Q4

REPORT INFORMATION
  Report Type: Spontaneous
  Country: US (occurrence: None)
  Receive Date: 20131126
  Receipt Date: 20131126
  Transmission Date: 20140711
  Serious: Yes (Hospitalization, Other)
  Sender: FDA-Public Use
  Company Number: 2013US002591

PATIENT
  Age: 47 Year
  Sex: Male
  Weight: 56 kg

DRUGS (5)
  1. ICLUSIG (PONATINIB) [Suspect]
     Indication: CHRONIC MYELOID LEUKAEMIA
     Route: 048
     Dates: start: 20131014, end: 20131015
  2. PROMACTA (ELTROMBOBAG OLAMINE) [Concomitant]
  3. METOPROLOL (METOPROLOL) [Concomitant]
  4. NORVASC (AMLODIPINE BESILATE) [Concomitant]
  5. LASIX (FUROSEMIDE) [Concomitant]

REACTIONS (8)
  - Sepsis syndrome [None]
  - Pulmonary oedema [None]
  - Ejection fraction decreased [None]
  - Myocardial infarction [None]
  - Thrombocytopenia [None]
  - Anaemia [None]
  - Thirst [None]
  - Oedema peripheral [None]
